FAERS Safety Report 4590850-3 (Version None)
Quarter: 2005Q1

REPORT INFORMATION
  Report Type: 
  Country: None (occurrence: None)
  Receive Date: 20050217
  Receipt Date: 20050128
  Transmission Date: 20050727
  Serious: Yes (Other)
  Sender: FDA-Public Use
  Company Number: 200510059BBE

PATIENT

DRUGS (45)
  1. GAMUNEX [Suspect]
     Indication: HYPOGAMMAGLOBULINAEMIA
     Dosage: OW, INTRAVENOUS
     Route: 042
     Dates: start: 20040924
  2. GAMUNEX [Suspect]
     Indication: POLYMYOSITIS
     Dosage: OW, INTRAVENOUS
     Route: 042
     Dates: start: 20040924
  3. GAMUNEX [Suspect]
     Indication: HYPOGAMMAGLOBULINAEMIA
     Dosage: OW, INTRAVENOUS
     Route: 042
     Dates: start: 20041021
  4. GAMUNEX [Suspect]
     Indication: POLYMYOSITIS
     Dosage: OW, INTRAVENOUS
     Route: 042
     Dates: start: 20041021
  5. GAMUNEX [Suspect]
     Indication: HYPOGAMMAGLOBULINAEMIA
     Dosage: OW, INTRAVENOUS
     Route: 042
     Dates: start: 20041029
  6. GAMUNEX [Suspect]
     Indication: POLYMYOSITIS
     Dosage: OW, INTRAVENOUS
     Route: 042
     Dates: start: 20041029
  7. GAMUNEX [Suspect]
     Indication: HYPOGAMMAGLOBULINAEMIA
     Dosage: OW, INTRAVENOUS
     Route: 042
     Dates: start: 20041105
  8. GAMUNEX [Suspect]
     Indication: POLYMYOSITIS
     Dosage: OW, INTRAVENOUS
     Route: 042
     Dates: start: 20041105
  9. GAMUNEX [Suspect]
     Indication: HYPOGAMMAGLOBULINAEMIA
     Dosage: OW, INTRAVENOUS
     Route: 042
     Dates: start: 20041119
  10. GAMUNEX [Suspect]
     Indication: POLYMYOSITIS
     Dosage: OW, INTRAVENOUS
     Route: 042
     Dates: start: 20041119
  11. GAMUNEX [Suspect]
     Indication: HYPOGAMMAGLOBULINAEMIA
     Dosage: OW, INTRAVENOUS
     Route: 042
     Dates: start: 20041203
  12. GAMUNEX [Suspect]
     Indication: POLYMYOSITIS
     Dosage: OW, INTRAVENOUS
     Route: 042
     Dates: start: 20041203
  13. GAMUNEX [Suspect]
     Indication: HYPOGAMMAGLOBULINAEMIA
     Dosage: OW, INTRAVENOUS
     Route: 042
     Dates: start: 20041210
  14. GAMUNEX [Suspect]
     Indication: POLYMYOSITIS
     Dosage: OW, INTRAVENOUS
     Route: 042
     Dates: start: 20041210
  15. GAMUNEX [Suspect]
     Indication: HYPOGAMMAGLOBULINAEMIA
     Dosage: OW, INTRAVENOUS
     Route: 042
     Dates: start: 20050107
  16. GAMUNEX [Suspect]
     Indication: POLYMYOSITIS
     Dosage: OW, INTRAVENOUS
     Route: 042
     Dates: start: 20050107
  17. GAMUNEX [Suspect]
     Indication: HYPOGAMMAGLOBULINAEMIA
     Dosage: OW, INTRAVENOUS
     Route: 042
     Dates: start: 20050114
  18. GAMUNEX [Suspect]
     Indication: POLYMYOSITIS
     Dosage: OW, INTRAVENOUS
     Route: 042
     Dates: start: 20050114
  19. GAMUNEX [Suspect]
     Indication: HYPOGAMMAGLOBULINAEMIA
     Dosage: OW, INTRAVENOUS
     Route: 042
     Dates: start: 20050121
  20. GAMUNEX [Suspect]
     Indication: POLYMYOSITIS
     Dosage: OW, INTRAVENOUS
     Route: 042
     Dates: start: 20050121
  21. GAMUNEX [Suspect]
     Indication: HYPOGAMMAGLOBULINAEMIA
     Dosage: OW, INTRAVENOUS
     Route: 042
     Dates: start: 20050128
  22. GAMUNEX [Suspect]
     Indication: POLYMYOSITIS
     Dosage: OW, INTRAVENOUS
     Route: 042
     Dates: start: 20050128
  23. GAMUNEX [Suspect]
  24. GAMUNEX [Suspect]
  25. GAMUNEX [Suspect]
  26. GAMUNEX [Suspect]
  27. GAMUNEX [Suspect]
  28. GAMUNEX [Suspect]
  29. GAMUNEX [Suspect]
  30. GAMUNEX [Suspect]
  31. GAMUNEX [Suspect]
  32. GAMUNEX [Suspect]
  33. GAMIMUNE N 10% [Suspect]
     Dosage: SEE IMAGE
     Dates: start: 20040903
  34. GAMIMUNE N 10% [Suspect]
     Dosage: SEE IMAGE
     Dates: start: 20040910
  35. GAMIMUNE N 10% [Suspect]
     Dosage: SEE IMAGE
     Dates: start: 20041008
  36. GAMIMUNE N 10% [Suspect]
     Dosage: SEE IMAGE
     Dates: start: 20041015
  37. GAMIMUNE N 10% [Suspect]
  38. GAMIMUNE N 10% [Suspect]
  39. GAMIMUNE N 10% [Suspect]
  40. PROVIGIL [Concomitant]
  41. ZYRTEC [Concomitant]
  42. NASONEX [Concomitant]
  43. PROTAMINE SULFATE [Concomitant]
  44. ZOLOFT [Concomitant]
  45. B12 [Concomitant]

REACTIONS (2)
  - HEPATITIS B SURFACE ANTIGEN POSITIVE [None]
  - HEPATITIS E ANTIGEN POSITIVE [None]
